FAERS Safety Report 7211066-8 (Version None)
Quarter: 2011Q1

REPORT INFORMATION
  Report Type: 
  Country: None (occurrence: None)
  Receive Date: 20110105
  Receipt Date: 20101227
  Transmission Date: 20110831
  Serious: Yes (Death, Hospitalization)
  Sender: FDA-Public Use
  Company Number: EG-SANOFI-AVENTIS-2010SA077927

PATIENT
  Age: 57 Year
  Sex: Male

DRUGS (2)
  1. LANTUS [Suspect]
     Indication: DIABETES MELLITUS
     Route: 058
     Dates: start: 20100605
  2. LANTUS [Suspect]
     Route: 058
     Dates: end: 20101101

REACTIONS (3)
  - LIVER DISORDER [None]
  - DEATH [None]
  - GANGRENE [None]
